FAERS Safety Report 13486293 (Version 3)
Quarter: 2017Q2

REPORT INFORMATION
  Report Type: Report from Study
  Country: US (occurrence: US)
  Receive Date: 20170426
  Receipt Date: 20170525
  Transmission Date: 20170830
  Serious: No
  Sender: FDA-Public Use
  Company Number: US-ALEXION PHARMACEUTICALS INC.-A201704236

PATIENT
  Sex: Male

DRUGS (1)
  1. STRENSIQ [Suspect]
     Active Substance: ASFOTASE ALFA
     Indication: HYPOPHOSPHATASIA
     Route: 058

REACTIONS (6)
  - Injection site swelling [Unknown]
  - Irritability [Unknown]
  - Injection site erythema [Unknown]
  - Gait disturbance [Unknown]
  - Seasonal allergy [Unknown]
  - Injection site warmth [Unknown]

NARRATIVE: CASE EVENT DATE: 20170424
